FAERS Safety Report 10664417 (Version 2)
Quarter: 2014Q4

REPORT INFORMATION
  Report Type: Report from Study
  Country: PL (occurrence: PL)
  Receive Date: 20141219
  Receipt Date: 20141219
  Transmission Date: 20150529
  Serious: Yes (Hospitalization)
  Sender: FDA-Public Use
  Company Number: PL-ROCHE-1348627

PATIENT
  Age: 65 Year
  Sex: Male
  Weight: 71.88 kg

DRUGS (37)
  1. FINASTERIDE. [Concomitant]
     Active Substance: FINASTERIDE
     Route: 065
     Dates: start: 20101106
  2. METOPROLOL TARTRATE. [Concomitant]
     Active Substance: METOPROLOL TARTRATE
     Route: 065
     Dates: start: 20131211
  3. ACIDUM ASCORBICUM [Concomitant]
     Route: 065
     Dates: start: 20091115
  4. ALPHA LIPOIC ACID [Concomitant]
     Active Substance: .ALPHA.-LIPOIC ACID
     Route: 065
     Dates: start: 20131217
  5. PANTOPRAZOLE [Concomitant]
     Active Substance: PANTOPRAZOLE SODIUM
     Route: 065
     Dates: start: 20130806
  6. ALFACALCIDOL [Concomitant]
     Active Substance: ALFACALCIDOL
     Route: 065
     Dates: start: 20130806
  7. SOTALOL. [Concomitant]
     Active Substance: SOTALOL
     Route: 065
     Dates: start: 20130806, end: 20131212
  8. VINPOCETINE [Concomitant]
     Active Substance: VINPOCETINE
     Route: 065
     Dates: start: 20131217
  9. ALLOPURINOL. [Concomitant]
     Active Substance: ALLOPURINOL
     Route: 065
     Dates: start: 20080314
  10. RUTOSIDUM [Concomitant]
     Route: 065
     Dates: start: 20091115
  11. MELATONIN [Concomitant]
     Active Substance: MELATONIN
     Route: 065
     Dates: start: 20131217
  12. METHOXY POLYETHYLENE GLYCOL-EPOETIN BETA [Suspect]
     Active Substance: PEGZEREPOETIN ALFA
     Route: 042
     Dates: start: 20131217
  13. METHOXY POLYETHYLENE GLYCOL-EPOETIN BETA [Suspect]
     Active Substance: PEGZEREPOETIN ALFA
     Route: 042
     Dates: start: 20140116
  14. DOXAZOSIN [Concomitant]
     Active Substance: DOXAZOSIN\DOXAZOSIN MESYLATE
     Route: 065
     Dates: start: 20130930
  15. ACETYLSALICYLIC ACID [Concomitant]
     Active Substance: ASPIRIN
     Route: 065
     Dates: start: 20100408
  16. LISINOPRIL. [Concomitant]
     Active Substance: LISINOPRIL
  17. BISOPROLOLI FUMARAS [Concomitant]
     Route: 065
     Dates: start: 20131211
  18. METHOXY POLYETHYLENE GLYCOL-EPOETIN BETA [Suspect]
     Active Substance: PEGZEREPOETIN ALFA
     Indication: NEPHROGENIC ANAEMIA
     Route: 042
     Dates: start: 20110616
  19. METHOXY POLYETHYLENE GLYCOL-EPOETIN BETA [Suspect]
     Active Substance: PEGZEREPOETIN ALFA
     Route: 042
     Dates: start: 20140513, end: 20140515
  20. FUROSEMIDE. [Concomitant]
     Active Substance: FUROSEMIDE
     Route: 065
     Dates: start: 20080122
  21. TAMSULOSINI HYDROCHLORIDUM [Concomitant]
     Route: 065
     Dates: start: 20100918
  22. ATORVASTATIN [Concomitant]
     Active Substance: ATORVASTATIN
     Route: 065
     Dates: start: 20100417
  23. GLYCERYL TRINITRATE [Concomitant]
     Active Substance: NITROGLYCERIN
     Dosage: AS NEEDED
     Route: 065
  24. NOVORAPID [Concomitant]
     Active Substance: INSULIN ASPART
     Route: 065
     Dates: start: 20071023
  25. CALCIUM CARBONICUM [Concomitant]
     Route: 065
     Dates: start: 20130619
  26. CLOPIDOGREL [Concomitant]
     Active Substance: CLOPIDOGREL BISULFATE
     Route: 065
     Dates: start: 20130606
  27. ACID FOLIC [Concomitant]
     Route: 065
     Dates: start: 20130907
  28. LOSARTAN [Concomitant]
     Active Substance: LOSARTAN
     Route: 065
     Dates: start: 20130930, end: 20131212
  29. TRIMEBUTINE [Concomitant]
     Active Substance: TRIMEBUTINE
     Route: 065
     Dates: start: 20131008, end: 20140121
  30. CARBAMAZEPINUM [Concomitant]
     Route: 065
     Dates: start: 20130903
  31. DROTAVERINE HYDROCHLORIDE [Concomitant]
     Active Substance: DROTAVERINE HYDROCHLORIDE
  32. PARACETAMOLUM [Concomitant]
     Route: 065
     Dates: start: 20130425
  33. GLARGINE [Concomitant]
     Route: 065
     Dates: start: 20071023
  34. LACIDIPINE [Concomitant]
     Active Substance: LACIDIPINE
     Route: 065
     Dates: start: 20130806
  35. VITAMIN B6 [Concomitant]
     Active Substance: PYRIDOXINE HYDROCHLORIDE
     Route: 065
     Dates: start: 20131217
  36. CLONIDINE. [Concomitant]
     Active Substance: CLONIDINE
     Route: 065
     Dates: start: 20130806
  37. CAPTOPIRIL [Concomitant]

REACTIONS (2)
  - Glioma [Unknown]
  - Ischaemic stroke [Recovered/Resolved with Sequelae]

NARRATIVE: CASE EVENT DATE: 20131231
